FAERS Safety Report 6185114-0 (Version None)
Quarter: 2009Q2

REPORT INFORMATION
  Report Type: 
  Country: None (occurrence: None)
  Receive Date: 20090507
  Receipt Date: 20090424
  Transmission Date: 20091009
  Serious: Yes (Hospitalization)
  Sender: FDA-Public Use
  Company Number: 2009AL002422

PATIENT
  Age: 55 Year
  Sex: Female

DRUGS (6)
  1. VENLAFAXINE HCL [Suspect]
     Indication: DEPRESSION
     Dosage: 75 MG, QD
  2. PROPRANOLOL HYDROCHLORIDE [Suspect]
     Indication: OESOPHAGEAL DISORDER
     Dosage: 160 MG; QD
  3. PANTOPRAZOLE SODIUM [Concomitant]
  4. CALCIUM [Concomitant]
  5. CHOLECALCIFEROL [Concomitant]
  6. ALENDRONIC ACID [Concomitant]

REACTIONS (11)
  - ACUTE RESPIRATORY FAILURE [None]
  - CONDITION AGGRAVATED [None]
  - EOSINOPHIL COUNT INCREASED [None]
  - HEPATIC CIRRHOSIS [None]
  - INTERCOSTAL RETRACTION [None]
  - OEDEMA PERIPHERAL [None]
  - OESOPHAGEAL VARICES HAEMORRHAGE [None]
  - PNEUMONIA MYCOPLASMAL [None]
  - PNEUMONITIS [None]
  - RALES [None]
  - UPPER GASTROINTESTINAL HAEMORRHAGE [None]
